FAERS Safety Report 17505994 (Version 1)
Quarter: 2020Q1

REPORT INFORMATION
  Report Type: Spontaneous
  Country: GB (occurrence: GB)
  Receive Date: 20200306
  Receipt Date: 20200306
  Transmission Date: 20200409
  Serious: Yes (Disabling)
  Sender: FDA-Public Use
  Company Number: GB-CIRCASSIA PHARMACEUTICALS INC-2020GB001317

PATIENT
  Age: 57 Year
  Sex: Female
  Weight: 92 kg

DRUGS (13)
  1. MIRABEGRON [Concomitant]
     Active Substance: MIRABEGRON
     Indication: PRODUCT USED FOR UNKNOWN INDICATION
     Dosage: 1 DF, DAILY
     Route: 065
     Dates: start: 20190815
  2. MACROGOL [Concomitant]
     Active Substance: POLYETHYLENE GLYCOLS
     Indication: PRODUCT USED FOR UNKNOWN INDICATION
     Dosage: USE AS ADVISED TO TREAT/PREVENT CONSTIPATION
     Route: 065
     Dates: start: 20181123
  3. ACLIDINIUM + FORMOTEROL [Suspect]
     Active Substance: ACLIDINIUM BROMIDE\FORMOTEROL FUMARATE
     Indication: PRODUCT USED FOR UNKNOWN INDICATION
     Dosage: 340MICROGRAMS/DOSE /12MICROGRAMS/DOSE
     Route: 055
     Dates: start: 20191127, end: 20191227
  4. GABAPENTIN. [Concomitant]
     Active Substance: GABAPENTIN
     Indication: PRODUCT USED FOR UNKNOWN INDICATION
     Dosage: 3 DF, DAILY
     Route: 065
     Dates: start: 20191007, end: 20191104
  5. TIOTROPIUM BROMIDE [Concomitant]
     Active Substance: TIOTROPIUM BROMIDE
     Indication: PRODUCT USED FOR UNKNOWN INDICATION
     Dosage: 1 DFI NHALE THE CONTENTS OF ONE CAPSULE
     Route: 055
     Dates: start: 20190521
  6. LIDOCAINE. [Concomitant]
     Active Substance: LIDOCAINE
     Indication: PRODUCT USED FOR UNKNOWN INDICATION
     Dosage: UNK
     Route: 065
     Dates: start: 20191030, end: 20191031
  7. SALBUTAMOL [Concomitant]
     Active Substance: ALBUTEROL
     Indication: PRODUCT USED FOR UNKNOWN INDICATION
     Dosage: ONE TO TWO PUFFS UP TO FOUR TIMES A DAY
     Dates: start: 20190521
  8. PARACETAMOL [Concomitant]
     Active Substance: ACETAMINOPHEN
     Indication: PRODUCT USED FOR UNKNOWN INDICATION
     Dosage: 8 DF, DAILY MAX 8 IN 24 HOURS
     Route: 065
     Dates: start: 20181123
  9. DEPO-MEDRONE [Concomitant]
     Active Substance: METHYLPREDNISOLONE
     Indication: PRODUCT USED FOR UNKNOWN INDICATION
     Dosage: USE AS DIRECTED
     Route: 065
     Dates: start: 20191030, end: 20191031
  10. BECLOMETASONE [Concomitant]
     Active Substance: BECLOMETHASONE DIPROPIONATE
     Indication: PRODUCT USED FOR UNKNOWN INDICATION
     Dosage: 4 DF, DAILY INTO EACH NOSTRIL
     Route: 065
     Dates: start: 20190521
  11. SCHERIPROCT [CINCHOCAINE HYDROCHLORIDE;PREDNISOLONE CAPROATE] [Concomitant]
     Indication: PRODUCT USED FOR UNKNOWN INDICATION
     Dosage: 1 WEEK 5 DAYS 1 DF, DAILY INSERT ONE DAILY AFTER A BOWEL MOVEMENT FOR 5-7
     Route: 065
     Dates: start: 20191007, end: 20191019
  12. DICLOFENAC DIETHYLAMINE [Concomitant]
     Active Substance: DICLOFENAC DIETHYLAMINE
     Indication: PRODUCT USED FOR UNKNOWN INDICATION
     Dosage: APPLY TWICE DAILY
     Route: 065
     Dates: start: 20181123
  13. PREGABALIN. [Concomitant]
     Active Substance: PREGABALIN
     Indication: PRODUCT USED FOR UNKNOWN INDICATION
     Dosage: 2 DF, DAILY
     Route: 065
     Dates: start: 20191104, end: 20191202

REACTIONS (1)
  - Tremor [Recovered/Resolved]

NARRATIVE: CASE EVENT DATE: 20200103
